FAERS Safety Report 7972069-9 (Version None)
Quarter: 2011Q4

REPORT INFORMATION
  Report Type: 
  Country: None (occurrence: None)
  Receive Date: 20111212
  Receipt Date: 20111209
  Transmission Date: 20120403
  Serious: No
  Sender: FDA-Public Use
  Company Number: US-PFIZER INC-2011300949

PATIENT
  Sex: Female

DRUGS (1)
  1. LYRICA [Suspect]
     Dosage: UNK, DAILY
     Route: 048
     Dates: start: 20111207

REACTIONS (2)
  - ORAL DISCOMFORT [None]
  - BREATH ODOUR [None]
